FAERS Safety Report 19087648 (Version 1)
Quarter: 2021Q2

REPORT INFORMATION
  Report Type: Spontaneous
  Country: US (occurrence: US)
  Receive Date: 20210402
  Receipt Date: 20210402
  Transmission Date: 20210717
  Serious: Yes (Other)
  Sender: FDA-Public Use
  Company Number: US-PFIZER INC-2021350586

PATIENT
  Age: 62 Year
  Sex: Female

DRUGS (1)
  1. CRIZOTINIB [Suspect]
     Active Substance: CRIZOTINIB
     Indication: ADENOCARCINOMA
     Dosage: UNK, 2X/DAY
     Dates: start: 201701

REACTIONS (2)
  - Neoplasm progression [Unknown]
  - Hepatic failure [Unknown]

NARRATIVE: CASE EVENT DATE: 201706
